FAERS Safety Report 5812410-6 (Version None)
Quarter: 2008Q3

REPORT INFORMATION
  Report Type: 
  Country: None (occurrence: None)
  Receive Date: 20080711
  Receipt Date: 20080627
  Transmission Date: 20090109
  Serious: Yes (Hospitalization, Disabling)
  Sender: FDA-Public Use
  Company Number: 2008BI011746

PATIENT
  Age: 49 Year
  Sex: Female
  Weight: 68 kg

DRUGS (2)
  1. TYSABRI [Suspect]
     Indication: MULTIPLE SCLEROSIS
     Dosage: 300 MG; QM; IV
     Route: 042
     Dates: start: 20060712
  2. MIRTAZAPINE [Concomitant]

REACTIONS (4)
  - ERYTHEMA [None]
  - MUSCULOSKELETAL PAIN [None]
  - NEURALGIA [None]
  - RASH PUSTULAR [None]
